FAERS Safety Report 5896993-6 (Version None)
Quarter: 2008Q3

REPORT INFORMATION
  Report Type: 
  Country: None (occurrence: None)
  Receive Date: 20080924
  Receipt Date: 20080108
  Transmission Date: 20090109
  Serious: Yes (Other)
  Sender: FDA-Public Use
  Company Number: US-ASTRAZENECA-2008UW00570

PATIENT
  Age: 34 Year
  Sex: Female
  Weight: 59 kg

DRUGS (6)
  1. SEROQUEL [Suspect]
     Indication: BIPOLAR DISORDER
     Route: 048
     Dates: start: 20070701, end: 20071221
  2. EFFEXOR [Suspect]
  3. EFFEXOR [Suspect]
     Dates: end: 20071201
  4. TOPAMAX [Concomitant]
     Dates: start: 20040101
  5. ADVAIR DISKUS 100/50 [Concomitant]
  6. SINGULAIR [Concomitant]

REACTIONS (8)
  - CHILLS [None]
  - INSOMNIA [None]
  - MANIA [None]
  - NIGHT SWEATS [None]
  - SUICIDAL IDEATION [None]
  - TINNITUS [None]
  - VOMITING [None]
  - WEIGHT INCREASED [None]
